FAERS Safety Report 14925354 (Version 2)
Quarter: 2018Q2

REPORT INFORMATION
  Report Type: Report from Study
  Country: US (occurrence: US)
  Receive Date: 20180522
  Receipt Date: 20180605
  Transmission Date: 20180711
  Serious: Yes (Hospitalization)
  Sender: FDA-Public Use
  Company Number: US-MALLINCKRODT-T201802028

PATIENT
  Sex: Female

DRUGS (1)
  1. REPOSITORY CORTICOTROPIN INJECTION [Suspect]
     Active Substance: CORTICOTROPIN
     Indication: SYSTEMIC LUPUS ERYTHEMATOSUS
     Dosage: 40 UNITS / .5 ML 2 TIMES PER WEEK MON + THURS
     Route: 058
     Dates: start: 20160523, end: 20180507

REACTIONS (3)
  - Pneumonia [Unknown]
  - Middle insomnia [Unknown]
  - Septic shock [Unknown]
